FAERS Safety Report 6240567-4 (Version None)
Quarter: 2009Q2

REPORT INFORMATION
  Report Type: 
  Country: None (occurrence: None)
  Receive Date: 20090623
  Receipt Date: 20080930
  Transmission Date: 20091009
  Serious: No
  Sender: FDA-Public Use
  Company Number: US-ASTRAZENECA-2008UW21237

PATIENT
  Age: 64 Year
  Sex: Female

DRUGS (2)
  1. PULMICORT FLEXHALER [Suspect]
     Indication: DYSPNOEA
     Dosage: 180 MG 2 PUFFS TWO TIMES A DAY
     Route: 055
     Dates: start: 20080828
  2. RHINOCORT [Concomitant]
     Route: 045

REACTIONS (2)
  - PYREXIA [None]
  - THROAT IRRITATION [None]
